FAERS Safety Report 6779205-0 (Version None)
Quarter: 2010Q2

REPORT INFORMATION
  Report Type: 
  Country: None (occurrence: None)
  Receive Date: 20100618
  Receipt Date: 20100609
  Transmission Date: 20101027
  Serious: Yes (Hospitalization)
  Sender: FDA-Public Use
  Company Number: DE-NOVOPROD-308719

PATIENT
  Age: 54 Year
  Sex: Female

DRUGS (4)
  1. ACTRAPHANE 30 INNOLET [Suspect]
     Indication: DIABETES MELLITUS
     Dosage: UNK
     Dates: start: 20100220, end: 20100311
  2. SIMVASTATIN [Concomitant]
  3. METOPROLOL SUCCINATE [Concomitant]
  4. AMLODIPIN                          /00972401/ [Concomitant]

REACTIONS (1)
  - ARRHYTHMIA [None]
